FAERS Safety Report 9980455 (Version 3)
Quarter: 2014Q1

REPORT INFORMATION
  Report Type: Spontaneous
  Country: FR (occurrence: FR)
  Receive Date: 20140307
  Receipt Date: 20140320
  Transmission Date: 20141002
  Serious: Yes (Hospitalization, Other)
  Sender: FDA-Public Use
  Company Number: 2014SP000808

PATIENT
  Age: 65 Year
  Sex: Male

DRUGS (15)
  1. CYTARABINE [Suspect]
     Indication: PRODUCT USED FOR UNKNOWN INDICATION
     Route: 041
     Dates: start: 20131127, end: 20131130
  2. LEDERFOLINE [Suspect]
     Indication: PRODUCT USED FOR UNKNOWN INDICATION
     Route: 048
     Dates: start: 20131130, end: 20131222
  3. ONDANSETRON [Suspect]
     Indication: PRODUCT USED FOR UNKNOWN INDICATION
     Route: 041
     Dates: start: 20131127, end: 20131204
  4. AMLOR [Suspect]
     Indication: PRODUCT USED FOR UNKNOWN INDICATION
     Route: 048
     Dates: start: 20131127, end: 20131203
  5. SULFAMETHOXAZOLE [Suspect]
     Indication: PRODUCT USED FOR UNKNOWN INDICATION
     Route: 048
     Dates: start: 20131128, end: 20131220
  6. TRIMETHOPRIM [Suspect]
     Indication: PRODUCT USED FOR UNKNOWN INDICATION
     Route: 048
     Dates: start: 20131128, end: 20131220
  7. ZELITREX [Suspect]
     Indication: PRODUCT USED FOR UNKNOWN INDICATION
     Route: 048
     Dates: start: 20131128
  8. ETOPOSIDE [Suspect]
     Indication: PRODUCT USED FOR UNKNOWN INDICATION
     Route: 041
     Dates: start: 20131127, end: 20131130
  9. HYDROXYZINE HYDROCHLORIDE [Suspect]
     Indication: PRODUCT USED FOR UNKNOWN INDICATION
     Route: 048
     Dates: start: 20131205, end: 20131220
  10. PRIMPERAN [Suspect]
     Indication: PRODUCT USED FOR UNKNOWN INDICATION
     Route: 041
     Dates: start: 20131202, end: 20131215
  11. APREPITANT [Suspect]
     Indication: PRODUCT USED FOR UNKNOWN INDICATION
     Route: 048
     Dates: start: 20131201, end: 20131204
  12. PREDNISONE [Suspect]
     Indication: PRODUCT USED FOR UNKNOWN INDICATION
     Route: 048
     Dates: start: 20131127, end: 20131130
  13. METFORMIN HYDROCHLORIDE [Concomitant]
     Route: 048
  14. RAMIPRIL [Concomitant]
     Route: 048
  15. SIMVASTATIN [Concomitant]
     Route: 048

REACTIONS (7)
  - Bone marrow failure [Recovered/Resolved]
  - Pyrexia [Unknown]
  - Papule [Unknown]
  - Hyperthermia [Recovered/Resolved]
  - Thrombocytopenia [Not Recovered/Not Resolved]
  - Purpura [Not Recovered/Not Resolved]
  - Hypogammaglobulinaemia [Unknown]
